FAERS Safety Report 6812390-0 (Version None)
Quarter: 2010Q2

REPORT INFORMATION
  Report Type: 
  Country: None (occurrence: None)
  Receive Date: 20100628
  Receipt Date: 20080130
  Transmission Date: 20101027
  Serious: Yes (Hospitalization)
  Sender: FDA-Public Use
  Company Number: LEO-2010-00554

PATIENT
  Age: 30 Year
  Sex: Female
  Weight: 49 kg

DRUGS (4)
  1. INNOHEP [Suspect]
     Indication: THROMBOSIS PROPHYLAXIS
     Dosage: 10000 IU (10000 IU, 1 IN 1 D)
     Dates: start: 20070515, end: 20071203
  2. DAFLON (DIOSMIN) [Concomitant]
  3. URSOCHOL (URSODEOXYCHOLIC ACID) [Concomitant]
  4. POLARAMINE [Concomitant]

REACTIONS (3)
  - CHOLESTASIS OF PREGNANCY [None]
  - POSTPARTUM HAEMORRHAGE [None]
  - VENOUS INSUFFICIENCY [None]
